FAERS Safety Report 21175037 (Version 1)
Quarter: 2022Q3

REPORT INFORMATION
  Report Type: Spontaneous
  Country: US (occurrence: US)
  Receive Date: 20220805
  Receipt Date: 20220805
  Transmission Date: 20221027
  Serious: Yes (Death, Other)
  Sender: FDA-Public Use
  Company Number: US-CLOVIS ONCOLOGY-CLO-2022-000887

PATIENT
  Age: 70 Year
  Sex: Male

DRUGS (2)
  1. RUBRACA [Suspect]
     Active Substance: RUCAPARIB CAMSYLATE
     Indication: Hormone-refractory prostate cancer
     Dosage: UNK
  2. DOLUTEGRAVIR, EMTRICITABINE AND TENOFOVIR ALAFENAMIDE [Concomitant]
     Indication: HIV infection

REACTIONS (3)
  - Death [Fatal]
  - Metastases to central nervous system [Unknown]
  - Therapy non-responder [Unknown]
